FAERS Safety Report 13537811 (Version 1)
Quarter: 2017Q2

REPORT INFORMATION
  Report Type: Spontaneous
  Country: BE (occurrence: BE)
  Receive Date: 20170511
  Receipt Date: 20170511
  Transmission Date: 20170830
  Serious: Yes (Other)
  Sender: FDA-Public Use
  Company Number: BE-SA-2017SA081083

PATIENT
  Age: 66 Year
  Sex: Male

DRUGS (8)
  1. ZALTRAP [Suspect]
     Active Substance: ZIV-AFLIBERCEPT
     Route: 042
     Dates: start: 201509, end: 201509
  2. ASPIRIN. [Concomitant]
     Active Substance: ASPIRIN
     Route: 065
  3. LEUCOVORIN. [Suspect]
     Active Substance: LEUCOVORIN
     Route: 042
     Dates: start: 201509, end: 201509
  4. ATORVASTATIN [Concomitant]
     Active Substance: ATORVASTATIN
     Route: 065
  5. IRINOTECAN [Suspect]
     Active Substance: IRINOTECAN
     Route: 042
     Dates: start: 201509, end: 201509
  6. IRINOTECAN [Suspect]
     Active Substance: IRINOTECAN
     Route: 042
  7. 5-FU [Suspect]
     Active Substance: FLUOROURACIL
     Route: 042
     Dates: start: 201509, end: 201509
  8. LISINOPRIL. [Concomitant]
     Active Substance: LISINOPRIL
     Route: 065

REACTIONS (7)
  - Hypertension [Unknown]
  - Disease progression [Unknown]
  - Diarrhoea [Recovering/Resolving]
  - Carcinoembryonic antigen increased [Unknown]
  - Pulmonary embolism [Unknown]
  - Proteinuria [Unknown]
  - Headache [Unknown]

NARRATIVE: CASE EVENT DATE: 201607
